FAERS Safety Report 8213639-2 (Version None)
Quarter: 2012Q1

REPORT INFORMATION
  Report Type: 
  Country: None (occurrence: None)
  Receive Date: 20120315
  Receipt Date: 20120306
  Transmission Date: 20120608
  Serious: Yes (Hospitalization)
  Sender: FDA-Public Use
  Company Number: US-ASTRAZENECA-2011SE33296

PATIENT
  Age: 29 Day
  Sex: Male

DRUGS (1)
  1. OMEPRAZOLE [Suspect]
     Route: 048

REACTIONS (2)
  - BLOOD OESTROGEN INCREASED [None]
  - GYNAECOMASTIA [None]
